FAERS Safety Report 4948024-X (Version None)
Quarter: 2006Q1

REPORT INFORMATION
  Report Type: 
  Country: None (occurrence: None)
  Receive Date: 20060320
  Receipt Date: 20051005
  Transmission Date: 20060701
  Serious: Yes (Hospitalization, Disabling)
  Sender: FDA-Public Use
  Company Number: US-MERCK-0510USA03387

PATIENT
  Age: 30 Year
  Sex: Male
  Weight: 70 kg

DRUGS (2)
  1. VIOXX [Suspect]
     Indication: LIMB INJURY
     Route: 048
     Dates: start: 20010516, end: 20010523
  2. [THERAPY UNSPECIFIED] [Concomitant]
     Route: 065

REACTIONS (13)
  - ANXIETY [None]
  - ATRIAL FIBRILLATION [None]
  - CARDIOVASCULAR DISORDER [None]
  - EMOTIONAL DISORDER [None]
  - HEADACHE [None]
  - HEART INJURY [None]
  - HELICOBACTER GASTRITIS [None]
  - HYPOXIA [None]
  - NAUSEA [None]
  - NERVE COMPRESSION [None]
  - PALPITATIONS [None]
  - ROTATOR CUFF SYNDROME [None]
  - VOMITING [None]
